FAERS Safety Report 5027077-7 (Version None)
Quarter: 2006Q2

REPORT INFORMATION
  Report Type: 
  Country: None (occurrence: None)
  Receive Date: 20060608
  Receipt Date: 20060601
  Transmission Date: 20061013
  Serious: Yes (Disabling)
  Sender: FDA-Public Use
  Company Number: 2006059592

PATIENT
  Age: 65 Year
  Sex: Female
  Weight: 44 kg

DRUGS (21)
  1. SULFASALAZINE [Suspect]
     Indication: RHEUMATOID ARTHRITIS
     Dosage: 500 MG (500 MG, 1 IN 1 D), ORAL
     Route: 048
     Dates: start: 20060309, end: 20060309
  2. OILATUM 1 (PARAFFIN, LIQUID, WOOL FAT) [Concomitant]
  3. HYDROMOL (ISOPROPYL MYRISTATE, PARRAFIN, LIQUID) [Concomitant]
  4. CELIPROLOL HYDROCHLORIDE (CELIPROLOL HYDROCHLORIDE) [Concomitant]
  5. ATORVASTATIN CALCIUM [Concomitant]
  6. AMITRIPTYLINE HYDROCHLORIDE [Concomitant]
  7. METHOTREXATE [Concomitant]
  8. IBANDRONIC ACID (IBANDRONIC ACID) [Concomitant]
  9. MOVELAT (ADRENAL CORTICAL EXTRACT, MUCOPOLYSACCHARIDE POLYSULFURIC ACI [Concomitant]
  10. OXYCODONE HCL [Concomitant]
  11. NITROGLYCERIN [Concomitant]
  12. WARFARIN SODIUM [Concomitant]
  13. ADCAL-D3 (CALCIUM CARBONATE, COLECALCIFEROL) [Concomitant]
  14. SLOZEM (DILTIAZEM HYDROCHLORIDE) [Concomitant]
  15. FOLIC ACID [Concomitant]
  16. TOLTERODINE TARTRATE (TOLTERODINE L-TARTRATE) [Concomitant]
  17. GABAPENTIN [Concomitant]
  18. OMEPRAZOLE [Concomitant]
  19. OXYCONTIN [Concomitant]
  20. ALL OTHER THERAPEUTIC PRODUCTS (ALL OTHER THERAPEUTIC PRODUCTS) [Concomitant]
  21. ACETAMINOPHEN [Concomitant]

REACTIONS (3)
  - BURNING SENSATION [None]
  - PAIN IN EXTREMITY [None]
  - SLEEP DISORDER [None]
